FAERS Safety Report 9321428 (Version 3)
Quarter: 2013Q3

REPORT INFORMATION
  Report Type: Spontaneous
  Country: US (occurrence: None)
  Receive Date: 20130528
  Receipt Date: 20130724
  Transmission Date: 20140515
  Serious: Yes (Other)
  Sender: FDA-Public Use
  Company Number: ACO_36323_2013

PATIENT
  Sex: Female
  Weight: 43.5 kg

DRUGS (19)
  1. AMPYRA [Suspect]
     Indication: PRODUCT USED FOR UNKNOWN INDICATION
     Route: 048
  2. XANAX (ALPRAZOLAM) TABLET [Concomitant]
  3. AMBIEN CR (ZOLPIDEM TARTRATE) TABLET [Concomitant]
  4. REMERON (MIRTAZAPINE) TABLET [Concomitant]
  5. LISINOPRIL (LISINOPRIL) TABLET [Concomitant]
  6. NEURONTIN (GABAPENTIN) CAPSULE [Concomitant]
  7. HYDROCHLOROTHIAZIDE (HYDROCHLOROTHIAZIDE) CAPSULE [Concomitant]
  8. METOPROLOL TARTRATE (METOPROLOL TARTRATE) TABLET [Concomitant]
  9. OXYCODONE (OXYCODONE) CAPSULE [Concomitant]
  10. ZANAFLEX (TIZANIDINE HYDROCHLORIDE) CAPSULE [Concomitant]
  11. MIRALAX (MACROGOL 3350) [Concomitant]
  12. FISH OIL (FISH OIL) CAPSULE [Concomitant]
  13. VITAMIN D (COLECALCIFEROL) CAPSULE [Concomitant]
  14. OXYCONTIN (OXYCODONE HYDROCHLORIDE) TABLET [Concomitant]
  15. LUTEIN (XANTOFYL) CAPSULE [Concomitant]
  16. PROBIOTICS CAPSULE [Concomitant]
  17. LACTULOSE (LACTULOSE) [Concomitant]
  18. ONDANSETRON (ONDANSETRON HYDROCHLORIDE) [Concomitant]
  19. REBIF (INTERFERON BETA-1A) [Concomitant]

REACTIONS (8)
  - Back disorder [None]
  - Hepatic enzyme increased [None]
  - Insomnia [None]
  - Constipation [None]
  - Nausea [None]
  - Weight decreased [None]
  - Malnutrition [None]
  - Glucose tolerance impaired [None]
